FAERS Safety Report 6551939-2 (Version None)
Quarter: 2010Q1

REPORT INFORMATION
  Report Type: 
  Country: None (occurrence: None)
  Receive Date: 20100126
  Receipt Date: 20100121
  Transmission Date: 20100710
  Serious: Yes (Other)
  Sender: FDA-Public Use
  Company Number: US-PERRIGO-10US006502

PATIENT
  Age: 5 Year
  Sex: Male
  Weight: 19.501 kg

DRUGS (2)
  1. IBUPROFEN 100MG JR GRAPE CHEWABLE 521 [Suspect]
     Indication: NASOPHARYNGITIS
     Dosage: 100 MG, SINGLE
     Route: 048
     Dates: start: 20100120, end: 20100120
  2. IBUPROFEN 100MG JR GRAPE CHEWABLE 521 [Suspect]
     Indication: CROUP INFECTIOUS

REACTIONS (1)
  - ANAPHYLACTIC REACTION [None]
